FAERS Safety Report 21400021 (Version 1)
Quarter: 2022Q4

REPORT INFORMATION
  Report Type: Report from Study
  Country: DE (occurrence: DE)
  Receive Date: 20221002
  Receipt Date: 20221002
  Transmission Date: 20230112
  Serious: Yes (Other)
  Sender: FDA-Public Use
  Company Number: DE-EMA-DD-20220914-6644991-113349

PATIENT
  Age: 51 Year
  Sex: Female
  Weight: 72 kg

DRUGS (4)
  1. ANASTROZOLE [Suspect]
     Active Substance: ANASTROZOLE
     Indication: Breast cancer
     Dosage: 5 MG, FREQUENCY TIME : 1 DAYS
     Dates: start: 20211210
  2. PALBOCICLIB [Suspect]
     Active Substance: PALBOCICLIB
     Indication: Breast cancer
     Dosage: 125 MG, DAILY FROM DAY 1 TO DAY 21 EVERY 28 DAY CYCLE, DURATION : 111 DAYS
     Dates: start: 20211210, end: 20220331
  3. PALBOCICLIB [Suspect]
     Active Substance: PALBOCICLIB
     Dosage: 100 MG, DAILY FROM DAY 1 TO DAY 21 EVERY 28 DAY CYCLE, THERAPY END DATE : NOT ASKED
     Dates: start: 20220408
  4. PALBOCICLIB [Suspect]
     Active Substance: PALBOCICLIB
     Dosage: THERAPY END DATE : NOT ASKED
     Dates: start: 20220222

REACTIONS (2)
  - Granulocyte count decreased [Unknown]
  - Overdose [Unknown]

NARRATIVE: CASE EVENT DATE: 20220222
